FAERS Safety Report 6168040-2 (Version None)
Quarter: 2009Q2

REPORT INFORMATION
  Report Type: 
  Country: None (occurrence: None)
  Receive Date: 20090423
  Receipt Date: 20090423
  Transmission Date: 20091009
  Serious: Yes (Death)
  Sender: FDA-Public Use
  Company Number: None

PATIENT
  Sex: Female
  Weight: 87.9978 kg

DRUGS (1)
  1. LOVENOX [Suspect]
     Dosage: 40MG DAILY SQ
     Route: 058

REACTIONS (1)
  - HAEMORRHAGE [None]
